FAERS Safety Report 15680036 (Version 1)
Quarter: 2018Q4

REPORT INFORMATION
  Report Type: Spontaneous
  Country: ES (occurrence: ES)
  Receive Date: 20181203
  Receipt Date: 20181203
  Transmission Date: 20190205
  Serious: Yes (Hospitalization)
  Sender: FDA-Public Use
  Company Number: ES-SUN PHARMACEUTICAL INDUSTRIES LTD-2018RR-185902

PATIENT
  Age: 89 Year
  Sex: Female

DRUGS (3)
  1. RIVAROXABAN [Suspect]
     Active Substance: RIVAROXABAN
     Indication: ATRIAL FIBRILLATION
     Dosage: 15 MG, QD
     Route: 048
     Dates: start: 201711, end: 201809
  2. DONEPEZIL. [Suspect]
     Active Substance: DONEPEZIL
     Dosage: 10 MG, QD
     Route: 048
     Dates: start: 201407
  3. RIVASTIGMINA [Suspect]
     Active Substance: RIVASTIGMINE TARTRATE
     Indication: DEMENTIA
     Dosage: 9.5 MILLIGRAM
     Dates: start: 201807, end: 20180905

REACTIONS (3)
  - Gastric ulcer [Unknown]
  - Rectal haemorrhage [Unknown]
  - Tachycardia [Unknown]

NARRATIVE: CASE EVENT DATE: 20180831
